FAERS Safety Report 18275149 (Version 4)
Quarter: 2021Q3

REPORT INFORMATION
  Report Type: Spontaneous
  Country: JP (occurrence: JP)
  Receive Date: 20200916
  Receipt Date: 20210827
  Transmission Date: 20211014
  Serious: Yes (Death)
  Sender: FDA-Public Use
  Company Number: JP-JNJFOC-20200909980

PATIENT
  Age: 90 Year
  Sex: Female
  Weight: 42 kg

DRUGS (6)
  1. TRACLEER [Concomitant]
     Active Substance: BOSENTAN
     Indication: PULMONARY HYPERTENSION
     Dates: end: 20200526
  2. HIRUDOID [Concomitant]
     Active Substance: GLYCOSAMINOGLYCANS
     Dates: end: 20200526
  3. NEXIUM [Concomitant]
     Active Substance: ESOMEPRAZOLE MAGNESIUM
     Indication: GASTROOESOPHAGEAL REFLUX DISEASE
     Dates: end: 20200526
  4. UPTRAVI [Suspect]
     Active Substance: SELEXIPAG
     Indication: PULMONARY HYPERTENSION
     Dosage: 0.2MG X 2/DAY
     Route: 048
     Dates: start: 20181002, end: 20200526
  5. TAKEPRON [Concomitant]
     Active Substance: LANSOPRAZOLE
  6. FLUTIDE [Concomitant]
     Indication: INTERSTITIAL LUNG DISEASE
     Dates: end: 20200526

REACTIONS (4)
  - Marasmus [Fatal]
  - Sepsis [Fatal]
  - Pulmonary hypertension [Fatal]
  - Hypophagia [Fatal]

NARRATIVE: CASE EVENT DATE: 20200526
